FAERS Safety Report 12745403 (Version 2)
Quarter: 2021Q2

REPORT INFORMATION
  Report Type: Spontaneous
  Country: US (occurrence: US)
  Receive Date: 20160915
  Receipt Date: 20210521
  Transmission Date: 20210716
  Serious: No
  Sender: FDA-Public Use
  Company Number: US-PFIZER INC-2016424572

PATIENT
  Age: 78 Year
  Sex: Female

DRUGS (1)
  1. CADUET [Suspect]
     Active Substance: AMLODIPINE BESYLATE\ATORVASTATIN CALCIUM
     Dosage: UNK (DOCTOR WANTED TO GO UP FROM THE 5 MG TO THE 10 MG)

REACTIONS (2)
  - Product dose omission issue [Unknown]
  - Palpitations [Unknown]

NARRATIVE: CASE EVENT DATE: 2016
